FAERS Safety Report 15990703 (Version 3)
Quarter: 2022Q3

REPORT INFORMATION
  Report Type: Spontaneous
  Country: JP (occurrence: JP)
  Receive Date: 20190221
  Receipt Date: 20220825
  Transmission Date: 20221027
  Serious: Yes (Hospitalization, Other)
  Sender: FDA-Public Use
  Company Number: JP-ELI_LILLY_AND_COMPANY-JP201902005283

PATIENT
  Age: 62 Year
  Sex: Female
  Weight: 45 kg

DRUGS (10)
  1. VERZENIO [Interacting]
     Active Substance: ABEMACICLIB
     Indication: Breast cancer stage IV
     Dosage: 300 MG, UNKNOWN
     Route: 048
     Dates: start: 20190109, end: 20190206
  2. VERZENIO [Interacting]
     Active Substance: ABEMACICLIB
     Dosage: 300 MG, UNKNOWN
     Route: 048
     Dates: start: 20190208
  3. WARFARIN [Interacting]
     Active Substance: WARFARIN
     Indication: Product used for unknown indication
     Dosage: 0.5 MG, OTHER
     Route: 048
  4. WARFARIN [Interacting]
     Active Substance: WARFARIN
     Dosage: 1 MG, OTHER
     Route: 048
  5. FASLODEX [Interacting]
     Active Substance: FULVESTRANT
     Indication: Breast cancer stage IV
     Dosage: 500 MG, CYCLICAL
     Route: 030
     Dates: start: 20190125
  6. DENOSUMAB [Concomitant]
     Active Substance: DENOSUMAB
     Indication: Breast cancer stage IV
     Dosage: 120 MG, MONTHLY (1/M)
     Route: 058
     Dates: start: 20181003
  7. LOPEMIN FOR CHILDREN [Concomitant]
     Indication: Adverse reaction
     Dosage: 1 MG, TID
     Route: 048
     Dates: start: 20190109
  8. LOPEMIN FOR CHILDREN [Concomitant]
     Dosage: 1 MG, OTHER
     Route: 048
     Dates: start: 20190109
  9. CALCIUM CARBONATE\CHOLECALCIFEROL\MAGNESIUM CARBONATE [Concomitant]
     Active Substance: CALCIUM CARBONATE\CHOLECALCIFEROL\MAGNESIUM CARBONATE
     Indication: Prophylaxis
     Dosage: UNK UNK, DAILY
     Route: 048
     Dates: start: 20181003
  10. ANASTROZOLE [Concomitant]
     Active Substance: ANASTROZOLE
     Indication: Breast cancer stage IV
     Dosage: UNK
     Route: 065
     Dates: start: 20190109, end: 20190125

REACTIONS (5)
  - Coagulopathy [Recovered/Resolved]
  - Melaena [Unknown]
  - Off label use [Unknown]
  - Drug interaction [Unknown]
  - Tumour marker increased [Unknown]

NARRATIVE: CASE EVENT DATE: 20190109
